FAERS Safety Report 23684094 (Version 2)
Quarter: 2024Q2

REPORT INFORMATION
  Report Type: Spontaneous
  Country: PK (occurrence: PK)
  Receive Date: 20240328
  Receipt Date: 20240520
  Transmission Date: 20240716
  Serious: Yes (Death)
  Sender: FDA-Public Use
  Company Number: PK-PFIZER INC-PV202300176805

PATIENT
  Age: 34 Year
  Sex: Male
  Weight: 50.5 kg

DRUGS (1)
  1. IXIFI [Suspect]
     Active Substance: INFLIXIMAB-QBTX
     Indication: Colitis ulcerative
     Dosage: 3 VIALS
     Route: 042
     Dates: start: 20231025, end: 20231026

REACTIONS (3)
  - Death [Fatal]
  - Off label use [Unknown]
  - Off label use [Unknown]
